FAERS Safety Report 22134307 (Version 1)
Quarter: 2023Q1

REPORT INFORMATION
  Report Type: Spontaneous
  Country: CN (occurrence: CN)
  Receive Date: 20230324
  Receipt Date: 20230324
  Transmission Date: 20230418
  Serious: Yes (Death)
  Sender: FDA-Public Use
  Company Number: CN-STRIDES ARCOLAB LIMITED-2023SP004234

PATIENT
  Age: 57 Year
  Sex: Male

DRUGS (18)
  1. DEXAMETHASONE [Suspect]
     Active Substance: DEXAMETHASONE
     Indication: Precursor T-lymphoblastic leukaemia acute
     Dosage: 40 MILLIGRAM, DAY 1-DAY 4 AND DAY 11-DAY 14 (AS HYPER-CVAD) - FOR 2 COURSES
     Route: 065
  2. PREDNISOLONE [Suspect]
     Active Substance: PREDNISOLONE
     Indication: Precursor T-lymphoblastic leukaemia acute
     Dosage: 60 MILLIGRAM, ON DAY 1-DAY 14 (AS VDCLP) (PREDNISONE ACETATE)
     Route: 065
  3. PREDNISOLONE [Suspect]
     Active Substance: PREDNISOLONE
     Dosage: 40 MILLIGRAM, ON DAY 15-DAY 21 (AS VDCLP) (PREDNISONE ACETATE)
     Route: 065
  4. PREDNISOLONE [Suspect]
     Active Substance: PREDNISOLONE
     Dosage: 40 MILLIGRAM/SQ. METER, ON DAY 1-DAY 5 (AS CVP REGIMEN) - FOR 5 COURSES. TABLET
     Route: 065
  5. ETOPOSIDE [Suspect]
     Active Substance: ETOPOSIDE
     Indication: Precursor T-lymphoblastic leukaemia acute
     Dosage: 170 MILLIGRAM, ON DAY 1-DAY 3 (AS EA REGIMEN WITH CYTARABINE) - 2 COURSES
     Route: 065
  6. DOXORUBICIN [Suspect]
     Active Substance: DOXORUBICIN
     Indication: Precursor T-lymphoblastic leukaemia acute
     Dosage: 50 MILLIGRAM/SQ. METER, ON DAY 4 (AS HYPER-CVAD) - FOR 2 COURSES
     Route: 065
  7. CYCLOPHOSPHAMIDE [Suspect]
     Active Substance: CYCLOPHOSPHAMIDE
     Indication: Precursor T-lymphoblastic leukaemia acute
     Dosage: 300 MILLIGRAM/SQ. METER, ON DAY 1 - DAY 3 ( AS HYPER-CVAD) - FOR 2 COURSES
     Route: 065
  8. CYCLOPHOSPHAMIDE [Suspect]
     Active Substance: CYCLOPHOSPHAMIDE
     Dosage: 1 GRAM, ON DAY 1 (AS VDCLP)
     Route: 065
  9. CYCLOPHOSPHAMIDE [Suspect]
     Active Substance: CYCLOPHOSPHAMIDE
     Dosage: 750 MILLIGRAM/SQ. METER, ON DAY 1 AND 15 (AS CVP REGIMEN) - FOR 5 COURSES
     Route: 065
  10. VINCRISTINE [Suspect]
     Active Substance: VINCRISTINE
     Indication: Precursor T-lymphoblastic leukaemia acute
     Dosage: 2 MILLIGRAM. ON DAY 4 AND DAY 11 (AS HYPER-CVAD) - FOR 2 COURSES
     Route: 065
  11. VINCRISTINE [Suspect]
     Active Substance: VINCRISTINE
     Dosage: 2 MILLIGRAM, ON DAY 1, DAY 8, DAY 15, DAY 22 (AS VDCLP)
     Route: 065
  12. VINCRISTINE [Suspect]
     Active Substance: VINCRISTINE
     Dosage: 2 MILLIGRAM, ON DAY 1 AND DAY 15 (AS CVP REGIMEN) - FOR 5 COURSES
     Route: 065
  13. CYTARABINE [Suspect]
     Active Substance: CYTARABINE
     Indication: Precursor T-lymphoblastic leukaemia acute
     Dosage: 3 GRAM PER SQUARE METRE, ON DAY 1-DAY 2 (AS EA REGIMEN WITH ETOPOSIDE) - 2 COURSES
     Route: 065
  14. DAUNORUBICIN [Suspect]
     Active Substance: DAUNORUBICIN
     Indication: Precursor T-lymphoblastic leukaemia acute
     Dosage: 45 MILLIGRAM/SQ. METER, ON DAY 1-DAY 3 AND DAY 15-DAY 17 (AS VDCLP)
     Route: 065
  15. PEGASPARGASE [Suspect]
     Active Substance: PEGASPARGASE
     Indication: Precursor T-lymphoblastic leukaemia acute
     Dosage: 3750 UNITS, ON DAY 2 (AS VDCLP: WITH DAUNORUBICIN, VINCRISTINE, CYCLOPHOSPHAMIDE, PREDNISONE ACETATE
     Route: 065
  16. TUCIDINOSTAT [Suspect]
     Active Substance: TUCIDINOSTAT
     Indication: Precursor T-lymphoblastic leukaemia acute
     Dosage: 30 MILLIGRAM, 2 TIMES A WEEK, TWICE A WEEK (AS CVP REGIMEN) - FOR 5 COURSES
     Route: 065
  17. TUCIDINOSTAT [Suspect]
     Active Substance: TUCIDINOSTAT
     Dosage: 30 MILLIGRAM, TWICE A WEEK; WITH AZACITIDINE
     Route: 065
  18. AZACITIDINE [Suspect]
     Active Substance: AZACITIDINE
     Indication: Precursor T-lymphoblastic leukaemia acute
     Dosage: 100 MILLIGRAM, DAY 1- DAY 7; WITH TUCIDINOSTAT
     Route: 065

REACTIONS (3)
  - Infection [Fatal]
  - Drug ineffective [Fatal]
  - Off label use [Unknown]
